FAERS Safety Report 23477327 (Version 1)
Quarter: 2024Q1

REPORT INFORMATION
  Report Type: Report from Study
  Country: US (occurrence: US)
  Receive Date: 20240204
  Receipt Date: 20240204
  Transmission Date: 20240410
  Serious: No
  Sender: FDA-Public Use
  Company Number: US-EXELIXIS-CABO-23067098

PATIENT
  Age: 88 Year
  Sex: Male

DRUGS (11)
  1. CABOMETYX [Suspect]
     Active Substance: CABOZANTINIB S-MALATE
     Indication: Malignant connective tissue neoplasm
     Dosage: 20 MG
     Dates: start: 20230720
  2. CABOMETYX [Suspect]
     Active Substance: CABOZANTINIB S-MALATE
     Indication: Soft tissue sarcoma
     Dosage: 40 MG, QD
     Dates: end: 20230816
  3. CABOMETYX [Suspect]
     Active Substance: CABOZANTINIB S-MALATE
     Indication: Osteosarcoma
  4. ASPIRIN [Concomitant]
     Active Substance: ASPIRIN
  5. ALFUZOSIN [Concomitant]
     Active Substance: ALFUZOSIN
  6. TYLENOL [Concomitant]
     Active Substance: ACETAMINOPHEN
  7. ATORVASTATIN [Concomitant]
     Active Substance: ATORVASTATIN
  8. FERROUS SULFATE [Concomitant]
     Active Substance: FERROUS SULFATE
  9. FINASTERIDE [Concomitant]
     Active Substance: FINASTERIDE
  10. LISINOPRIL [Concomitant]
     Active Substance: LISINOPRIL
  11. PLAQUENIL [Concomitant]
     Active Substance: HYDROXYCHLOROQUINE SULFATE

REACTIONS (9)
  - Dysuria [Not Recovered/Not Resolved]
  - Arthralgia [Not Recovered/Not Resolved]
  - Diarrhoea [Not Recovered/Not Resolved]
  - Fatigue [Not Recovered/Not Resolved]
  - Rash [Not Recovered/Not Resolved]
  - Pain in extremity [Not Recovered/Not Resolved]
  - Abdominal pain upper [Not Recovered/Not Resolved]
  - Nausea [Recovered/Resolved]
  - Off label use [Unknown]

NARRATIVE: CASE EVENT DATE: 20230814
